FAERS Safety Report 5606285-8 (Version None)
Quarter: 2008Q1

REPORT INFORMATION
  Report Type: 
  Country: None (occurrence: None)
  Receive Date: 20080129
  Receipt Date: 20070426
  Transmission Date: 20080703
  Serious: No
  Sender: FDA-Public Use
  Company Number: A0648965A

PATIENT
  Sex: Female

DRUGS (1)
  1. BUPROPION HCL [Suspect]
     Indication: DRUG USE FOR UNKNOWN INDICATION
     Route: 048
     Dates: start: 20070101

REACTIONS (2)
  - CONDITION AGGRAVATED [None]
  - DRUG INEFFECTIVE [None]
